FAERS Safety Report 8036257-8 (Version None)
Quarter: 2012Q1

REPORT INFORMATION
  Report Type: 
  Country: None (occurrence: None)
  Receive Date: 20120111
  Receipt Date: 20120104
  Transmission Date: 20120608
  Serious: Yes (Other)
  Sender: FDA-Public Use
  Company Number: PHHY2012BR001295

PATIENT
  Sex: Female
  Weight: 79 kg

DRUGS (5)
  1. CALCIUM WITH VITAMIN D [Concomitant]
     Dosage: UNK UKN, UNK
  2. GENTEAL [Suspect]
     Indication: EYE LUBRICATION THERAPY
     Dosage: UNK UKN, UNK
     Route: 047
  3. LORAX [Concomitant]
     Dosage: UNK UKN, UNK
  4. VITALUX PLUS [Suspect]
     Indication: CORNEAL DISORDER
     Dosage: 1 DF, QD
     Route: 048
  5. VERAPAMIL [Concomitant]
     Dosage: UNK UKN, UNK

REACTIONS (5)
  - FATIGUE [None]
  - BLEPHARITIS [None]
  - CARDIAC FAILURE [None]
  - LACRIMATION INCREASED [None]
  - EYE PAIN [None]
